FAERS Safety Report 23936029 (Version 3)
Quarter: 2024Q4

REPORT INFORMATION
  Report Type: Spontaneous
  Country: CA (occurrence: CA)
  Receive Date: 20240604
  Receipt Date: 20241206
  Transmission Date: 20250115
  Serious: Yes (Other)
  Sender: CELLTRION
  Company Number: CA-PFIZER INC-202400181332

PATIENT

DRUGS (8)
  1. INFLECTRA [Suspect]
     Active Substance: INFLIXIMAB-DYYB
     Indication: Colitis ulcerative
     Dosage: 400 MG, Q 0, 2,6, THEN EVERY 8 WEEKS
     Route: 042
     Dates: start: 20240430
  2. INFLECTRA [Suspect]
     Active Substance: INFLIXIMAB-DYYB
     Dosage: 400 MG, Q 0, 2,6, THEN EVERY 8 WEEKS (AFTER 4 WEEKS (WEEK 6 INDUCTION)
     Route: 042
     Dates: start: 20240528
  3. INFLECTRA [Suspect]
     Active Substance: INFLIXIMAB-DYYB
     Dosage: 400 MG, Q 0, 2,6, THEN EVERY 8 WEEKS
     Route: 042
     Dates: start: 20240917
  4. INFLECTRA [Suspect]
     Active Substance: INFLIXIMAB-DYYB
     Dosage: 400 MG, Q 0, 2,6, THEN EVERY 8 WEEKS
     Route: 042
     Dates: start: 20241113
  5. BUDESONIDE [Concomitant]
     Active Substance: BUDESONIDE
     Dosage: UNK
  6. METOPROLOL [Concomitant]
     Active Substance: METOPROLOL
     Dosage: UNK
  7. PREDNISONE [Concomitant]
     Active Substance: PREDNISONE
     Dosage: UNK
  8. MESALAMINE [Concomitant]
     Active Substance: MESALAMINE
     Dosage: UNK

REACTIONS (3)
  - Spinal fracture [Recovering/Resolving]
  - Nasopharyngitis [Recovered/Resolved]
  - Cough [Recovering/Resolving]

NARRATIVE: CASE EVENT DATE: 20240501
